FAERS Safety Report 5384889-8 (Version None)
Quarter: 2007Q3

REPORT INFORMATION
  Report Type: 
  Country: None (occurrence: None)
  Receive Date: 20070709
  Receipt Date: 20070702
  Transmission Date: 20080115
  Serious: Yes (Life-Threatening, Hospitalization)
  Sender: FDA-Public Use
  Company Number: 2007SP009949

PATIENT
  Age: 52 Year
  Sex: Female
  Weight: 65.7716 kg

DRUGS (5)
  1. INTRON A [Suspect]
     Indication: HEPATITIS C
     Dates: start: 20070101
  2. PEG-INTRON [Suspect]
     Indication: HEPATITIS C
     Dosage: 120 MCG; QW; SC
     Route: 058
     Dates: start: 20070201, end: 20070227
  3. RIBAVIRIN [Suspect]
     Indication: HEPATITIS C
     Dosage: PO ; 20 MG BID PO
     Route: 048
     Dates: start: 20070214, end: 20070227
  4. RIBAVIRIN [Suspect]
     Indication: HEPATITIS C
     Dosage: PO ; 20 MG BID PO
     Route: 048
     Dates: start: 20070101
  5. ZYVOX [Suspect]
     Indication: STAPHYLOCOCCAL INFECTION
     Dates: start: 20070401

REACTIONS (6)
  - ANAEMIA [None]
  - BLOOD CREATININE INCREASED [None]
  - HAEMORRHAGIC ASCITES [None]
  - HYPERSPLENISM [None]
  - STAPHYLOCOCCAL INFECTION [None]
  - THROMBOCYTOPENIA [None]
